FAERS Safety Report 7944697-8 (Version None)
Quarter: 2011Q4

REPORT INFORMATION
  Report Type: 
  Country: None (occurrence: None)
  Receive Date: 20111129
  Receipt Date: 20111119
  Transmission Date: 20120403
  Serious: Yes (Other)
  Sender: FDA-Public Use
  Company Number: US-RB-030443-11

PATIENT
  Age: 31 Year
  Sex: Female

DRUGS (2)
  1. CLONOPIN [Concomitant]
  2. MUCINEX DM [Suspect]
     Indication: PRODUCT USED FOR UNKNOWN INDICATION
     Route: 048
     Dates: start: 20111118

REACTIONS (10)
  - ANXIETY [None]
  - HYPERTENSION [None]
  - BURNING SENSATION [None]
  - DIZZINESS [None]
  - PANIC ATTACK [None]
  - TREMOR [None]
  - PARALYSIS [None]
  - PYREXIA [None]
  - HALLUCINATION [None]
  - MUSCLE SPASMS [None]
